FAERS Safety Report 18195185 (Version 2)
Quarter: 2020Q3

REPORT INFORMATION
  Report Type: Spontaneous
  Country: US (occurrence: US)
  Receive Date: 20200825
  Receipt Date: 20200920
  Transmission Date: 20201103
  Serious: Yes (Hospitalization)
  Sender: FDA-Public Use
  Company Number: US-TEVA-2020-US-1818273

PATIENT
  Sex: Male

DRUGS (2)
  1. EZETIMIBE /SIMVASTATIN [Suspect]
     Active Substance: EZETIMIBE\SIMVASTATIN
     Route: 065
  2. EZETIMIBE /SIMVASTATIN [Suspect]
     Active Substance: EZETIMIBE\SIMVASTATIN
     Indication: PRODUCT USED FOR UNKNOWN INDICATION
     Route: 065

REACTIONS (2)
  - Tendon rupture [Unknown]
  - Tendonitis [Unknown]
